FAERS Safety Report 18687046 (Version 2)
Quarter: 2024Q2

REPORT INFORMATION
  Report Type: Spontaneous
  Country: US (occurrence: US)
  Receive Date: 20201231
  Receipt Date: 20240403
  Transmission Date: 20240716
  Serious: Yes (Hospitalization, Other)
  Sender: FDA-Public Use
  Company Number: US-GLAXOSMITHKLINE-US2020GSK253777

PATIENT

DRUGS (1)
  1. LAMOTRIGINE [Suspect]
     Active Substance: LAMOTRIGINE
     Indication: Epilepsy
     Dosage: UNK

REACTIONS (16)
  - Drug-induced liver injury [Recovered/Resolved]
  - Haemophagocytic lymphohistiocytosis [Recovered/Resolved]
  - Pyrexia [Recovered/Resolved]
  - Fatigue [Recovered/Resolved]
  - Rash morbilliform [Recovered/Resolved]
  - Encephalopathy [Recovered/Resolved]
  - Hepatomegaly [Recovered/Resolved]
  - Hepatic necrosis [Recovered/Resolved]
  - B-lymphocyte count increased [Recovered/Resolved]
  - Blood triglycerides increased [Recovered/Resolved]
  - Eosinophil count [Recovered/Resolved]
  - Drug hypersensitivity [Recovered/Resolved]
  - Serum ferritin increased [Recovered/Resolved]
  - Hypertransaminasaemia [Unknown]
  - Thrombocytopenia [Unknown]
  - Rash [Unknown]
